FAERS Safety Report 13652119 (Version 1)
Quarter: 2017Q2

REPORT INFORMATION
  Report Type: Report from Study
  Country: HK (occurrence: HK)
  Receive Date: 20170614
  Receipt Date: 20170614
  Transmission Date: 20170830
  Serious: Yes (Hospitalization)
  Sender: FDA-Public Use
  Company Number: HK-AMGEN-HKGCT2014020447

PATIENT
  Age: 51 Year
  Sex: Female
  Weight: 72.4 kg

DRUGS (17)
  1. DEXAMETHASONE. [Concomitant]
     Active Substance: DEXAMETHASONE
     Dosage: 20 MG, UNK
     Route: 042
     Dates: start: 20130815, end: 20140109
  2. RANITIDINE. [Concomitant]
     Active Substance: RANITIDINE
     Dosage: 50 MG, UNK
     Route: 042
     Dates: start: 20130815, end: 20140109
  3. PEPCIDINE [Concomitant]
     Active Substance: FAMOTIDINE
     Dosage: 20 MG, UNK
     Route: 048
     Dates: start: 20131109, end: 20140109
  4. LACTULOSE. [Concomitant]
     Active Substance: LACTULOSE
     Dosage: 10 ML, UNK
     Route: 048
     Dates: start: 20131109
  5. TRAMADOL. [Concomitant]
     Active Substance: TRAMADOL
     Dosage: 50 MG, UNK
     Route: 048
     Dates: start: 20131109
  6. PYRIDOXINE HCL [Concomitant]
     Active Substance: PYRIDOXINE HYDROCHLORIDE
     Dosage: 20 MG, UNK
     Route: 048
     Dates: start: 20140110, end: 20140306
  7. PACLITAXEL. [Concomitant]
     Active Substance: PACLITAXEL
     Dosage: 297.5 MG, UNK
     Route: 042
     Dates: start: 20131219
  8. ZOFRAN [Concomitant]
     Active Substance: ONDANSETRON HYDROCHLORIDE
     Dosage: 8 MG, UNK
     Route: 042
     Dates: start: 20130815, end: 20140109
  9. PREDNISOLONE. [Concomitant]
     Active Substance: PREDNISOLONE
     Dosage: 40 MG, UNK
     Route: 048
     Dates: start: 20130808
  10. FLUOCINOLONE ACETONIDE. [Concomitant]
     Active Substance: FLUOCINOLONE ACETONIDE
     Dosage: 1 UNK, UNK
     Route: 061
     Dates: start: 20140110, end: 20140123
  11. AMG 386 [Suspect]
     Active Substance: TREBANANIB
     Indication: OVARIAN CANCER
     Dosage: UNK
     Route: 065
     Dates: start: 20130815
  12. DIPHENHYDRAMIN [Concomitant]
     Active Substance: DIPHENHYDRAMINE
     Dosage: 50 MG, UNK
     Route: 042
     Dates: start: 20130815, end: 20140109
  13. CARBOPLATIN. [Concomitant]
     Active Substance: CARBOPLATIN
     Dosage: 768.5 - 794.6 MG, UNK
     Route: 042
     Dates: start: 20131219
  14. PIRITON [Concomitant]
     Active Substance: CHLORPHENIRAMINE MALEATE
     Dosage: 4 MG, UNK
     Route: 048
     Dates: start: 20130830
  15. APREPITANT. [Concomitant]
     Active Substance: APREPITANT
     Dosage: 80 - 125 MG, UNK
     Route: 048
     Dates: start: 20130815, end: 20140111
  16. PANADOL [Concomitant]
     Active Substance: ACETAMINOPHEN
     Dosage: 1 G, UNK
     Route: 048
     Dates: start: 20131109
  17. MAXOLON [Concomitant]
     Active Substance: METOCLOPRAMIDE HYDROCHLORIDE
     Dosage: 20 MG, UNK
     Route: 048
     Dates: start: 20130809

REACTIONS (1)
  - Ascites [Recovered/Resolved]

NARRATIVE: CASE EVENT DATE: 20140307
